FAERS Safety Report 16532200 (Version 2)
Quarter: 2020Q1

REPORT INFORMATION
  Report Type: Report from Study
  Country: SE (occurrence: SE)
  Receive Date: 20190704
  Receipt Date: 20200325
  Transmission Date: 20200409
  Serious: Yes (Life-Threatening, Hospitalization)
  Sender: FDA-Public Use
  Company Number: SE-TEVA-2019-SE-1070604

PATIENT
  Age: 81 Year
  Sex: Male

DRUGS (3)
  1. DIAZEPAM. [Suspect]
     Active Substance: DIAZEPAM
     Route: 065
  2. AMLODIPINE [Suspect]
     Active Substance: AMLODIPINE BESYLATE
     Dosage: AT A DOSE OF 0.5-1G
     Route: 048
  3. INSULIN [Suspect]
     Active Substance: INSULIN NOS
     Indication: CARDIAC DYSFUNCTION
     Dosage: LOADING DOSE OF 1 U/KG FOLLOWED BY INFUSION AT 1 U/KG/H, 5 U/KG/H AND THEN 10 U/KG/H
     Route: 065

REACTIONS (5)
  - Pulmonary oedema [Recovered/Resolved]
  - Overdose [Unknown]
  - Haemodynamic instability [Recovered/Resolved]
  - Myocardial depression [Recovered/Resolved]
  - Toxicity to various agents [Unknown]
